FAERS Safety Report 8138374-0 (Version None)
Quarter: 2012Q1

REPORT INFORMATION
  Report Type: 
  Country: None (occurrence: None)
  Receive Date: 20120213
  Receipt Date: 20120202
  Transmission Date: 20120608
  Serious: Yes (Other)
  Sender: FDA-Public Use
  Company Number: 7104975

PATIENT
  Age: 32 Year
  Sex: Female

DRUGS (1)
  1. LEVOTHYROXINE SODIUM [Suspect]
     Indication: AUTOIMMUNE THYROIDITIS
     Dosage: 1 DF (1 DF,1 IN 1 D) ORAL
     Route: 048
     Dates: start: 20110413, end: 20120105

REACTIONS (5)
  - REACTION TO DRUG EXCIPIENTS [None]
  - HEADACHE [None]
  - DRY EYE [None]
  - EXOPHTHALMOS [None]
  - EXPOSURE DURING BREAST FEEDING [None]
